FAERS Safety Report 4700078-1 (Version None)
Quarter: 2005Q2

REPORT INFORMATION
  Report Type: 
  Country: None (occurrence: None)
  Receive Date: 20050627
  Receipt Date: 20050603
  Transmission Date: 20051028
  Serious: Yes (Hospitalization, Other)
  Sender: FDA-Public Use
  Company Number: JP-BRISTOL-MYERS SQUIBB COMPANY-12998316

PATIENT
  Age: 85 Year
  Sex: Male
  Weight: 57 kg

DRUGS (1)
  1. MEVALOTIN [Suspect]
     Indication: HYPERLIPIDAEMIA
     Route: 048
     Dates: start: 20040701, end: 20050425

REACTIONS (3)
  - BILE DUCT STONE [None]
  - JAUNDICE [None]
  - LIVER DISORDER [None]
